FAERS Safety Report 6369270-7 (Version None)
Quarter: 2009Q3

REPORT INFORMATION
  Report Type: 
  Country: None (occurrence: None)
  Receive Date: 20090916
  Receipt Date: 20090903
  Transmission Date: 20100115
  Serious: Yes (Hospitalization)
  Sender: FDA-Public Use
  Company Number: ADR23132009

PATIENT
  Age: 39 Year
  Sex: Male

DRUGS (5)
  1. CITALOPRAM HYDROBROMIDE [Suspect]
     Indication: DEPRESSION
     Dosage: 60 MG
     Route: 048
     Dates: start: 20090604, end: 20090615
  2. RISPERIDONE [Suspect]
     Indication: OBSESSIVE-COMPULSIVE DISORDER
     Dosage: 2 MG
     Route: 048
     Dates: start: 20090604, end: 20090615
  3. OLANZAPINE [Concomitant]
  4. PROMAZINE HYDROCHLORIDE [Concomitant]
  5. HYDROCHLORIDE [Concomitant]

REACTIONS (3)
  - EATING DISORDER [None]
  - FLUID INTAKE REDUCED [None]
  - NEUROLEPTIC MALIGNANT SYNDROME [None]
